FAERS Safety Report 5923382-8 (Version None)
Quarter: 2008Q4

REPORT INFORMATION
  Report Type: 
  Country: None (occurrence: None)
  Receive Date: 20081015
  Receipt Date: 20081001
  Transmission Date: 20090506
  Serious: Yes (Other)
  Sender: FDA-Public Use
  Company Number: WAES 0810USA00722

PATIENT

DRUGS (1)
  1. ZOCOR [Suspect]
     Indication: PROPHYLAXIS
     Dosage: 80 MG/DAILY/PO
     Route: 048

REACTIONS (1)
  - MYOCARDIAL INFARCTION [None]
